FAERS Safety Report 24043150 (Version 2)
Quarter: 2024Q3

REPORT INFORMATION
  Report Type: Spontaneous
  Country: UA (occurrence: UA)
  Receive Date: 20240702
  Receipt Date: 20240830
  Transmission Date: 20241016
  Serious: Yes (Other)
  Sender: NOVARTIS
  Company Number: UA-002147023-NVSC2024UA135263

PATIENT
  Age: 44 Year
  Sex: Female

DRUGS (4)
  1. OFATUMUMAB [Suspect]
     Active Substance: OFATUMUMAB
     Indication: Relapsing multiple sclerosis
     Dosage: 20 MG (1 PER 28 DAYS)
     Route: 058
     Dates: start: 20240117
  2. PREGABALIN [Concomitant]
     Active Substance: PREGABALIN
     Indication: Neuralgia
     Dosage: 150 MG, BID
     Route: 048
  3. TIZANIDINE [Concomitant]
     Active Substance: TIZANIDINE
     Indication: Muscle relaxant therapy
     Dosage: 4 MG, QD (ONCE PER NIGHT)
     Route: 048
  4. TIZANIDINE [Concomitant]
     Active Substance: TIZANIDINE
     Indication: Muscle spasticity

REACTIONS (4)
  - Peripheral swelling [Not Recovered/Not Resolved]
  - Discomfort [Unknown]
  - Pain [Unknown]
  - Hypersensitivity [Unknown]
